FAERS Safety Report 13196969 (Version 3)
Quarter: 2018Q1

REPORT INFORMATION
  Report Type: Spontaneous
  Country: US (occurrence: US)
  Receive Date: 20170208
  Receipt Date: 20180319
  Transmission Date: 20180508
  Serious: No
  Sender: FDA-Public Use
  Company Number: US-GLAXOSMITHKLINE-US2017017215

PATIENT
  Sex: Male
  Weight: 69.84 kg

DRUGS (2)
  1. ADVAIR HFA [Suspect]
     Active Substance: FLUTICASONE PROPIONATE\SALMETEROL XINAFOATE
     Indication: CHRONIC OBSTRUCTIVE PULMONARY DISEASE
     Dosage: UNK
     Route: 055
     Dates: start: 2013
  2. ADVAIR HFA [Suspect]
     Active Substance: FLUTICASONE PROPIONATE\SALMETEROL XINAFOATE
     Dosage: 2 PUFF(S), BID
     Route: 055

REACTIONS (6)
  - Product cleaning inadequate [Recovered/Resolved]
  - Product use in unapproved indication [Unknown]
  - Product storage error [Unknown]
  - Device use error [Recovered/Resolved]
  - Drug effect decreased [Unknown]
  - Underdose [Unknown]
